FAERS Safety Report 9014828 (Version 1)
Quarter: 2013Q1

REPORT INFORMATION
  Report Type: Spontaneous
  Country: JP (occurrence: JP)
  Receive Date: 20130116
  Receipt Date: 20130116
  Transmission Date: 20140127
  Serious: Yes (Death, Hospitalization)
  Sender: FDA-Public Use
  Company Number: JP-009507513-1301JPN005415

PATIENT
  Age: 78 Year
  Sex: Male

DRUGS (1)
  1. ZETIA [Suspect]
     Indication: DYSLIPIDAEMIA
     Dosage: 10 MG, QD
     Route: 048
     Dates: start: 20080821, end: 20120308

REACTIONS (2)
  - Acute myocardial infarction [Fatal]
  - Cardiac failure [Fatal]
